FAERS Safety Report 6643293-2 (Version None)
Quarter: 2010Q1

REPORT INFORMATION
  Report Type: 
  Country: None (occurrence: None)
  Receive Date: 20100319
  Receipt Date: 20100310
  Transmission Date: 20100710
  Serious: Yes (Hospitalization)
  Sender: FDA-Public Use
  Company Number: GXKR2010US02871

PATIENT
  Age: 55 Year
  Sex: Female
  Weight: 91.4 kg

DRUGS (5)
  1. FLUOXETINE [Suspect]
     Dosage: 20 MG, A FEW CAPSULES
     Route: 048
  2. TRAZODONE (NGX) [Suspect]
     Dosage: SMALL NUMBER
     Route: 048
  3. ALCOHOL [Suspect]
     Dosage: A PINT OF RUM
     Route: 048
  4. BENZATROPINE [Suspect]
     Dosage: 1 MG, A FEW TABLETS
     Route: 048
  5. ZIPRASIDONE HCL [Interacting]
     Dosage: 150 DF, ONCE/SINGLE
     Route: 048

REACTIONS (13)
  - CARDIOVERSION [None]
  - COGNITIVE DISORDER [None]
  - DRY MOUTH [None]
  - FLUSHING [None]
  - HYPERHIDROSIS [None]
  - INTENTIONAL OVERDOSE [None]
  - MALAISE [None]
  - MYDRIASIS [None]
  - NAUSEA [None]
  - SUICIDE ATTEMPT [None]
  - TORSADE DE POINTES [None]
  - VENTRICULAR FIBRILLATION [None]
  - VOMITING [None]
